FAERS Safety Report 5786101-4 (Version None)
Quarter: 2008Q2

REPORT INFORMATION
  Report Type: 
  Country: None (occurrence: None)
  Receive Date: 20080620
  Receipt Date: 20080620
  Transmission Date: 20081010
  Serious: Yes (Hospitalization)
  Sender: FDA-Public Use
  Company Number: None

PATIENT
  Sex: Male
  Weight: 76 kg

DRUGS (1)
  1. TEMOZOLOMIDE [Suspect]
     Dosage: 570 MG

REACTIONS (7)
  - CONVULSION [None]
  - DISEASE PROGRESSION [None]
  - FEELING HOT [None]
  - GENERAL PHYSICAL HEALTH DETERIORATION [None]
  - ORGAN FAILURE [None]
  - PLATELET COUNT DECREASED [None]
  - SEPSIS [None]
